FAERS Safety Report 8606131-4 (Version None)
Quarter: 2012Q3

REPORT INFORMATION
  Report Type: 
  Country: None (occurrence: None)
  Receive Date: 20120820
  Receipt Date: 20120809
  Transmission Date: 20120928
  Serious: Yes (Other)
  Sender: FDA-Public Use
  Company Number: SE-ASTRAZENECA-2012SE53172

PATIENT
  Age: 58 Year
  Sex: Male

DRUGS (1)
  1. ATACAND [Suspect]
     Indication: ESSENTIAL HYPERTENSION
     Route: 048

REACTIONS (2)
  - ANGIOEDEMA [None]
  - TONGUE OEDEMA [None]
